FAERS Safety Report 24162690 (Version 1)
Quarter: 2024Q3

REPORT INFORMATION
  Report Type: Spontaneous
  Country: US (occurrence: None)
  Receive Date: 20240801
  Receipt Date: 20240801
  Transmission Date: 20241017
  Serious: Yes (Other)
  Sender: Public
  Company Number: None

PATIENT
  Age: 52 Year
  Sex: Female
  Weight: 67.5 kg

DRUGS (4)
  1. BACTROBAN [Suspect]
     Active Substance: MUPIROCIN CALCIUM
     Indication: Wound
     Dosage: OTHER QUANTITY : 1 20 MG;?FREQUENCY : 3 TIMES A DAY;?
     Route: 061
     Dates: start: 20240730, end: 20240731
  2. HYDROXYZINE HCL [Concomitant]
  3. BUSPIRONE [Concomitant]
     Active Substance: BUSPIRONE HYDROCHLORIDE
  4. ADVIL [Concomitant]
     Active Substance: IBUPROFEN\IBUPROFEN SODIUM

REACTIONS (3)
  - Headache [None]
  - Eye swelling [None]
  - Dyspnoea [None]

NARRATIVE: CASE EVENT DATE: 20240731
